FAERS Safety Report 5525608-1 (Version None)
Quarter: 2007Q4

REPORT INFORMATION
  Report Type: 
  Country: None (occurrence: None)
  Receive Date: 20071126
  Receipt Date: 20071114
  Transmission Date: 20080405
  Serious: Yes (Hospitalization)
  Sender: FDA-Public Use
  Company Number: GB-ASTRAZENECA-2007GB02339

PATIENT
  Age: 47 Year
  Sex: Female

DRUGS (3)
  1. LIDOCAINE [Suspect]
     Indication: BURSITIS
     Route: 065
     Dates: start: 20070831, end: 20070831
  2. KENALOG [Suspect]
     Indication: MUSCULOSKELETAL PAIN
     Route: 065
     Dates: start: 20070831, end: 20070831
  3. PARACETAMOL [Concomitant]
     Indication: ANALGESIA

REACTIONS (2)
  - ARTHRITIS INFECTIVE [None]
  - PAIN [None]
